FAERS Safety Report 23662200 (Version 3)
Quarter: 2024Q2

REPORT INFORMATION
  Report Type: Spontaneous
  Country: AU (occurrence: AU)
  Receive Date: 20240322
  Receipt Date: 20240422
  Transmission Date: 20240716
  Serious: Yes (Death, Hospitalization, Other)
  Sender: FDA-Public Use
  Company Number: AU-BAXTER-2024BAX014784

PATIENT
  Age: 73 Year
  Sex: Female

DRUGS (2)
  1. SODIUM CHLORIDE [Suspect]
     Active Substance: SODIUM CHLORIDE
     Indication: Medication dilution
     Dosage: 1 LITRE,19A SODIUM CHLORIDE USP (ROUTE: ARTERIAL)
     Route: 050
  2. SODIUM CHLORIDE [Suspect]
     Active Substance: SODIUM CHLORIDE
     Indication: Catheter management
     Dosage: 1 LITRE,19A SODIUM CHLORIDE USP (ROUTE: INTRA-ARTERIAL VIA PRESSURE BAG)
     Route: 013
     Dates: start: 20240308, end: 20240308

REACTIONS (4)
  - Air embolism [Fatal]
  - Embolism arterial [Fatal]
  - Wrong technique in product usage process [Fatal]
  - Incorrect route of product administration [Fatal]

NARRATIVE: CASE EVENT DATE: 20240308
